FAERS Safety Report 18434669 (Version 1)
Quarter: 2020Q4

REPORT INFORMATION
  Report Type: Report from Study
  Country: JP (occurrence: JP)
  Receive Date: 20201028
  Receipt Date: 20201028
  Transmission Date: 20210114
  Serious: Yes (Disabling, Other)
  Sender: FDA-Public Use
  Company Number: JP-AMGEN-JPNNI2019114046

PATIENT
  Age: 16 Year
  Sex: Female

DRUGS (5)
  1. MTX [METHOTREXATE] [Suspect]
     Active Substance: METHOTREXATE SODIUM
     Indication: PRODUCT USED FOR UNKNOWN INDICATION
     Dosage: UNK UNK, Q2WK
     Route: 037
     Dates: start: 201905
  2. BLINATUMOMAB [Suspect]
     Active Substance: BLINATUMOMAB
     Indication: B PRECURSOR TYPE ACUTE LEUKAEMIA
     Dosage: 9 MICROGRAM, QD
     Route: 041
     Dates: start: 20190708, end: 20190714
  3. DEXART [Concomitant]
     Active Substance: DEXAMETHASONE SODIUM PHOSPHATE
     Indication: PROPHYLAXIS
     Dosage: UNK
     Dates: end: 20190708
  4. BLINATUMOMAB [Suspect]
     Active Substance: BLINATUMOMAB
     Dosage: 28 MICROGRAM, QD
     Route: 041
     Dates: start: 20190820, end: 20190901
  5. BLINATUMOMAB [Suspect]
     Active Substance: BLINATUMOMAB
     Indication: CENTRAL NERVOUS SYSTEM LEUKAEMIA
     Dosage: 28 MICROGRAM, QD
     Route: 041
     Dates: start: 20190715, end: 20190804

REACTIONS (4)
  - Central nervous system necrosis [Not Recovered/Not Resolved]
  - Febrile neutropenia [Recovered/Resolved]
  - Headache [Recovered/Resolved]
  - Pruritus [Recovered/Resolved]

NARRATIVE: CASE EVENT DATE: 20190708
